FAERS Safety Report 4502439-2 (Version None)
Quarter: 2004Q4

REPORT INFORMATION
  Report Type: 
  Country: None (occurrence: None)
  Receive Date: 20041112
  Receipt Date: 20040826
  Transmission Date: 20050328
  Serious: Yes (Hospitalization)
  Sender: FDA-Public Use
  Company Number: 8741

PATIENT
  Age: 53 Year
  Sex: Female

DRUGS (4)
  1. LEUCOVORIN [Suspect]
     Indication: COLON CANCER
     Dosage: 75 MG
     Route: 048
     Dates: start: 20040730, end: 20040731
  2. LEUCOVORIN [Suspect]
     Indication: METASTASIS
     Dosage: 75 MG
     Route: 048
     Dates: start: 20040730, end: 20040731
  3. TEGAFUR URACIL [Suspect]
     Indication: COLON CANCER
     Dosage: 400 MG
     Route: 048
     Dates: start: 20040730, end: 20040731
  4. TEGAFUR URACIL [Suspect]
     Indication: METASTASIS
     Dosage: 400 MG
     Route: 048
     Dates: start: 20040730, end: 20040731

REACTIONS (7)
  - ABDOMINAL PAIN UPPER [None]
  - ENTEROCOLITIS [None]
  - ESCHERICHIA SEPSIS [None]
  - GAMMA-GLUTAMYLTRANSFERASE INCREASED [None]
  - NAUSEA [None]
  - PYREXIA [None]
  - VOMITING [None]
